FAERS Safety Report 8559447 (Version 2)
Quarter: 2012Q4

REPORT INFORMATION
  Report Type: 
  Country: ES (occurrence: ES)
  Receive Date: 20120513
  Receipt Date: 20120830
  Transmission Date: 20130627
  Serious: Yes (Hospitalization)
  Sender: FDA-Public Use
  Company Number: ES-ELI_LILLY_AND_COMPANY-ES201205000789

PATIENT
  Sex: Male

DRUGS (2)
  1. FORSTEO [Suspect]
     Dosage: UNK, unknown
     Route: 065
     Dates: start: 20120420, end: 20120814
  2. FORSTEO [Suspect]
     Dosage: UNK, unknown
     Route: 065

REACTIONS (5)
  - Surgery [Unknown]
  - Nosocomial infection [Unknown]
  - Drug dose omission [Unknown]
  - Bone pain [Unknown]
  - Headache [Unknown]
